FAERS Safety Report 6803254-7 (Version None)
Quarter: 2010Q2

REPORT INFORMATION
  Report Type: 
  Country: None (occurrence: None)
  Receive Date: 20100628
  Receipt Date: 20100518
  Transmission Date: 20101027
  Serious: Yes (Death, Hospitalization, Other)
  Sender: FDA-Public Use
  Company Number: US-BAXTER-2010BH007683

PATIENT
  Age: 54 Year
  Sex: Female

DRUGS (5)
  1. HEPARIN SODIUM [Suspect]
     Indication: HAEMODIALYSIS
     Route: 042
     Dates: start: 20070801, end: 20080101
  2. OXYCODONE HCL [Concomitant]
     Indication: DRUG USE FOR UNKNOWN INDICATION
     Route: 065
  3. PLAVIX [Concomitant]
     Indication: DRUG USE FOR UNKNOWN INDICATION
     Route: 065
  4. PREGABALIN [Concomitant]
     Indication: DRUG USE FOR UNKNOWN INDICATION
     Route: 065
  5. EPOGEN [Concomitant]
     Indication: DRUG USE FOR UNKNOWN INDICATION
     Route: 065

REACTIONS (12)
  - ABDOMINAL PAIN [None]
  - ASTHENIA [None]
  - BURNING SENSATION [None]
  - CELLULITIS GANGRENOUS [None]
  - DRY GANGRENE [None]
  - NEUROPATHY PERIPHERAL [None]
  - PROCEDURAL HYPOTENSION [None]
  - PRURITUS [None]
  - PULSE ABSENT [None]
  - SEPSIS [None]
  - SKIN ULCER [None]
  - SOFT TISSUE NECROSIS [None]
